FAERS Safety Report 15613541 (Version 1)
Quarter: 2018Q4

REPORT INFORMATION
  Report Type: Spontaneous
  Country: RU (occurrence: RU)
  Receive Date: 20181113
  Receipt Date: 20181113
  Transmission Date: 20190205
  Serious: Yes (Hospitalization)
  Sender: FDA-Public Use
  Company Number: RU-ARALEZ PHARMACEUTICALS R+D INC.-2018-ARA-002847

PATIENT
  Age: 68 Year
  Sex: Female

DRUGS (5)
  1. THROMBO ASS [Concomitant]
     Active Substance: ASPIRIN
     Dosage: UNK
  2. ATORVASTATIN [Concomitant]
     Active Substance: ATORVASTATIN
     Dosage: UNK
  3. METOPROLOL SUCCINATE. [Suspect]
     Active Substance: METOPROLOL SUCCINATE
     Indication: PRODUCT USED FOR UNKNOWN INDICATION
     Dosage: UNK
     Route: 048
     Dates: start: 20171013
  4. BRILINTA [Suspect]
     Active Substance: TICAGRELOR
     Indication: MYOCARDIAL INFARCTION
     Dosage: 90 MG, BID
     Route: 048
     Dates: start: 20171013
  5. ENAP                               /00574902/ [Concomitant]
     Active Substance: ENALAPRIL MALEATE
     Dosage: UNK

REACTIONS (6)
  - Angina unstable [Recovered/Resolved]
  - Blood pressure decreased [Recovered/Resolved]
  - Haematoma [Recovered/Resolved]
  - Blood pressure increased [Recovered/Resolved]
  - Urticaria [Recovered/Resolved]
  - Arterial spasm [Recovered/Resolved]

NARRATIVE: CASE EVENT DATE: 20171013
